FAERS Safety Report 23186320 (Version 1)
Quarter: 2023Q4

REPORT INFORMATION
  Report Type: Spontaneous
  Country: US (occurrence: None)
  Receive Date: 20231115
  Receipt Date: 20231115
  Transmission Date: 20240110
  Serious: Yes (Life-Threatening, Hospitalization)
  Sender: FDA-Public Use
  Company Number: None

PATIENT
  Age: 46 Year
  Sex: Male
  Weight: 109 kg

DRUGS (7)
  1. PACLITAXEL [Suspect]
     Active Substance: PACLITAXEL
     Indication: Lung neoplasm malignant
     Dosage: OTHER FREQUENCY : EVERY 21 DAYS;?
     Route: 042
     Dates: start: 20231114, end: 20231114
  2. KEYTRUDA [Concomitant]
     Active Substance: PEMBROLIZUMAB
     Dates: start: 20231114
  3. BENADRYL [Concomitant]
     Active Substance: DIPHENHYDRAMINE HYDROCHLORIDE
     Dates: start: 20231114
  4. DECADRON [Concomitant]
     Active Substance: DEXAMETHASONE
     Dates: start: 20231114
  5. EMEND [Concomitant]
     Active Substance: APREPITANT
     Dates: start: 20231114
  6. ALOXI [Concomitant]
     Active Substance: PALONOSETRON HYDROCHLORIDE
     Dates: start: 20231114
  7. PEPCID [Concomitant]
     Active Substance: FAMOTIDINE
     Dates: start: 20231114

REACTIONS (2)
  - Infusion related reaction [None]
  - Feeling abnormal [None]

NARRATIVE: CASE EVENT DATE: 20231114
